FAERS Safety Report 7703343-9 (Version None)
Quarter: 2011Q3

REPORT INFORMATION
  Report Type: 
  Country: None (occurrence: None)
  Receive Date: 20110823
  Receipt Date: 20110809
  Transmission Date: 20111222
  Serious: Yes (Hospitalization, Other)
  Sender: FDA-Public Use
  Company Number: DE-ELI_LILLY_AND_COMPANY-DE201105000060

PATIENT
  Age: 77 Year
  Sex: Female

DRUGS (3)
  1. CALCIUM CARBONATE [Concomitant]
     Dosage: 600 MG, UNK
  2. INSULIN [Concomitant]
     Dosage: UNK, QID
     Dates: start: 20060101
  3. FORTEO [Suspect]
     Indication: OSTEOPOROSIS
     Dosage: UNK, QD
     Route: 058
     Dates: start: 20100428, end: 20110101

REACTIONS (4)
  - PALPITATIONS [None]
  - CARDIAC DISORDER [None]
  - PULMONARY OEDEMA [None]
  - HEART INJURY [None]
